FAERS Safety Report 10389896 (Version 2)
Quarter: 2014Q3

REPORT INFORMATION
  Report Type: Spontaneous
  Country: GB (occurrence: None)
  Receive Date: 20140813
  Receipt Date: 20140827
  Transmission Date: 20150326
  Serious: Yes (Disabling, Other)
  Sender: FDA-Public Use
  Company Number: AUR-APL-2014-08272

PATIENT
  Age: 57 Year
  Sex: Male
  Weight: 79.8 kg

DRUGS (2)
  1. AMIAS (CANDESARTAN CILEXETIL) [Concomitant]
  2. AMLODIPINE [Suspect]
     Active Substance: AMLODIPINE BESYLATE
     Indication: HYPERTENSION
     Dosage: 10MG, ONCE A DAY, ORAL
     Route: 048
     Dates: start: 200809

REACTIONS (8)
  - Tremor [None]
  - Infertility [None]
  - Blood testosterone decreased [None]
  - Sperm concentration zero [None]
  - Parkinsonian gait [None]
  - Testicular atrophy [None]
  - Muscle atrophy [None]
  - Erectile dysfunction [None]

NARRATIVE: CASE EVENT DATE: 200909
